FAERS Safety Report 19503508 (Version 1)
Quarter: 2021Q3

REPORT INFORMATION
  Report Type: Report from Study
  Country: US (occurrence: US)
  Receive Date: 20210707
  Receipt Date: 20210707
  Transmission Date: 20211014
  Serious: Yes (Hospitalization, Other)
  Sender: FDA-Public Use
  Company Number: US-TAKEDA-US201916424

PATIENT
  Sex: Female
  Weight: 51 kg

DRUGS (12)
  1. TEDUGLUTIDE [Suspect]
     Active Substance: TEDUGLUTIDE
     Indication: SHORT-BOWEL SYNDROME
     Dosage: 0.201 MILLILITER, 1X/DAY:QD
     Route: 050
     Dates: start: 20171217
  2. TEDUGLUTIDE [Suspect]
     Active Substance: TEDUGLUTIDE
     Indication: SHORT-BOWEL SYNDROME
     Dosage: 0.201 MILLILITER, 1X/DAY:QD
     Route: 050
     Dates: start: 20171217
  3. TEDUGLUTIDE [Suspect]
     Active Substance: TEDUGLUTIDE
     Indication: CROHN^S DISEASE
     Dosage: 0.201 MILLILITER, 1X/DAY:QD
     Route: 050
  4. TEDUGLUTIDE [Suspect]
     Active Substance: TEDUGLUTIDE
     Dosage: 2.01 MILLIGRAM
     Route: 058
  5. TEDUGLUTIDE [Suspect]
     Active Substance: TEDUGLUTIDE
     Dosage: 2.01 MILLIGRAM
     Route: 058
  6. TEDUGLUTIDE [Suspect]
     Active Substance: TEDUGLUTIDE
     Indication: CROHN^S DISEASE
     Dosage: 0.201 MILLILITER, 1X/DAY:QD
     Route: 050
  7. TEDUGLUTIDE [Suspect]
     Active Substance: TEDUGLUTIDE
     Indication: SHORT-BOWEL SYNDROME
     Dosage: 0.201 MILLILITER, 1X/DAY:QD
     Route: 050
     Dates: start: 20171217
  8. TEDUGLUTIDE [Suspect]
     Active Substance: TEDUGLUTIDE
     Indication: SHORT-BOWEL SYNDROME
     Dosage: 0.201 MILLILITER, 1X/DAY:QD
     Route: 050
     Dates: start: 20171217
  9. TEDUGLUTIDE [Suspect]
     Active Substance: TEDUGLUTIDE
     Indication: CROHN^S DISEASE
     Dosage: 0.201 MILLILITER, 1X/DAY:QD
     Route: 050
  10. TEDUGLUTIDE [Suspect]
     Active Substance: TEDUGLUTIDE
     Indication: CROHN^S DISEASE
     Dosage: 0.201 MILLILITER, 1X/DAY:QD
     Route: 050
  11. TEDUGLUTIDE [Suspect]
     Active Substance: TEDUGLUTIDE
     Dosage: 2.01 MILLIGRAM
     Route: 058
  12. TEDUGLUTIDE [Suspect]
     Active Substance: TEDUGLUTIDE
     Dosage: 2.01 MILLIGRAM
     Route: 058

REACTIONS (5)
  - Hospitalisation [Unknown]
  - Thrombosis [Not Recovered/Not Resolved]
  - Blood iron decreased [Unknown]
  - Inappropriate schedule of product administration [Unknown]
  - Weight fluctuation [Unknown]
